FAERS Safety Report 9749525 (Version 1)
Quarter: 2013Q3

REPORT INFORMATION
  Report Type: Spontaneous
  Country: GB (occurrence: None)
  Receive Date: 20130912
  Receipt Date: 20130912
  Transmission Date: 20140515
  Serious: Yes (Disabling)
  Sender: FDA-Public Use
  Company Number: AUR-APL-2013-07471

PATIENT
  Age: 44 Year
  Sex: Female

DRUGS (1)
  1. CIPROFLOXACIN (CIPROFLOXACIN) [Suspect]
     Indication: BACK PAIN
     Dosage: 500 MG (250 MG, 1 IN 1 D), ORAL
     Route: 048
     Dates: start: 20121006, end: 20121010

REACTIONS (4)
  - Disturbance in attention [None]
  - Fatigue [None]
  - Depressed mood [None]
  - Tenosynovitis [None]
